FAERS Safety Report 23911849 (Version 1)
Quarter: 2024Q2

REPORT INFORMATION
  Report Type: Spontaneous
  Country: CA (occurrence: CA)
  Receive Date: 20240528
  Receipt Date: 20240528
  Transmission Date: 20240716
  Serious: Yes (Death, Hospitalization, Other)
  Sender: FDA-Public Use
  Company Number: CA-AstraZeneca-2024A118394

PATIENT
  Age: 68 Year
  Sex: Female

DRUGS (1)
  1. TRASTUZUMAB DERUXTECAN [Suspect]
     Active Substance: TRASTUZUMAB DERUXTECAN
     Indication: HER2 low breast cancer
     Dosage: 417 MG, ONCE EVERY 3 WK
     Route: 042

REACTIONS (10)
  - Acute kidney injury [Fatal]
  - Clostridium difficile infection [Fatal]
  - Death [Fatal]
  - Dehydration [Fatal]
  - Gastrointestinal haemorrhage [Fatal]
  - Hyperglycaemia [Fatal]
  - Immunodeficiency [Fatal]
  - Malignant neoplasm progression [Fatal]
  - Thrombosis [Fatal]
  - Urinary tract infection [Fatal]
